FAERS Safety Report 13755463 (Version 2)
Quarter: 2017Q3

REPORT INFORMATION
  Report Type: Other
  Country: DK (occurrence: DK)
  Receive Date: 20170714
  Receipt Date: 20170725
  Transmission Date: 20171127
  Serious: Yes (Other)
  Sender: FDA-Public Use
  Company Number: DK-CELLTRION HEALTHCARE JAPAN K.K.-2017DK008962

PATIENT

DRUGS (6)
  1. IBUPROFEN. [Concomitant]
     Active Substance: IBUPROFEN
     Indication: PRODUCT USED FOR UNKNOWN INDICATION
  2. REMSIMA [Suspect]
     Active Substance: INFLIXIMAB
     Dosage: 500 MG, WEEKS 0, 2, 6, +6.
     Route: 042
     Dates: start: 20170608, end: 20170608
  3. PARACETAMOL [Concomitant]
     Active Substance: ACETAMINOPHEN
     Indication: PRODUCT USED FOR UNKNOWN INDICATION
  4. OXYCODONE [Concomitant]
     Active Substance: OXYCODONE
     Indication: PRODUCT USED FOR UNKNOWN INDICATION
  5. ESTRADIOL. [Concomitant]
     Active Substance: ESTRADIOL
     Indication: PRODUCT USED FOR UNKNOWN INDICATION
  6. REMSIMA [Suspect]
     Active Substance: INFLIXIMAB
     Indication: ARTHRITIS ENTEROPATHIC
     Dosage: 500 MG, WEEKS 0, 2, 6, +6.
     Route: 042
     Dates: start: 20170419, end: 20170419

REACTIONS (5)
  - Tachycardia [Recovered/Resolved]
  - Feeling hot [Recovered/Resolved]
  - Chest discomfort [Recovered/Resolved]
  - Hyperhidrosis [Recovered/Resolved]
  - Anaphylactic reaction [Recovered/Resolved]

NARRATIVE: CASE EVENT DATE: 20170608
